FAERS Safety Report 5297962-X (Version None)
Quarter: 2007Q2

REPORT INFORMATION
  Report Type: 
  Country: None (occurrence: None)
  Receive Date: 20070416
  Receipt Date: 20070402
  Transmission Date: 20071010
  Serious: Yes (Other)
  Sender: FDA-Public Use
  Company Number: PHEH2007US04536

PATIENT
  Age: 56 Year
  Sex: Female

DRUGS (9)
  1. ZELNORM [Suspect]
     Indication: CONSTIPATION
     Dosage: 12 MG, QHS
     Dates: end: 20070327
  2. ELMIRON [Concomitant]
  3. DETROL [Concomitant]
  4. CARAFATE [Concomitant]
  5. PREVACID [Concomitant]
  6. COREG [Concomitant]
  7. REMIFEMIN [Concomitant]
  8. EXCEDRIN (MIGRAINE) [Concomitant]
  9. LOTREL [Suspect]
     Indication: HYPERTENSION
     Dates: start: 20060101

REACTIONS (2)
  - ABDOMINAL PAIN LOWER [None]
  - APPENDICECTOMY [None]
